FAERS Safety Report 25182667 (Version 1)
Quarter: 2025Q2

REPORT INFORMATION
  Report Type: Spontaneous
  Country: BE (occurrence: BE)
  Receive Date: 20250410
  Receipt Date: 20250410
  Transmission Date: 20250717
  Serious: Yes (Hospitalization, Other)
  Sender: RANBAXY
  Company Number: BE-SUN PHARMACEUTICAL INDUSTRIES LTD-2025R1-503254

PATIENT
  Age: 78 Year
  Sex: Female

DRUGS (7)
  1. DIGOXIN [Suspect]
     Active Substance: DIGOXIN
     Indication: Hypertension
     Dosage: 0.125 MILLIGRAM, OD
     Route: 065
  2. ABEMACICLIB [Suspect]
     Active Substance: ABEMACICLIB
     Indication: Hypertension
     Dosage: 200 MILLIGRAM, BID
     Route: 065
  3. ABEMACICLIB [Suspect]
     Active Substance: ABEMACICLIB
     Dosage: 50 MILLIGRAM, BID
     Route: 065
  4. ASPIRIN [Concomitant]
     Active Substance: ASPIRIN
     Indication: Hypertension
     Dosage: 80 MILLIGRAM, OD
     Route: 065
  5. CLOPIDOGREL [Concomitant]
     Active Substance: CLOPIDOGREL BISULFATE
     Indication: Hypertension
     Dosage: 75 MILLIGRAM, OD
     Route: 065
  6. PANTOPRAZOLE [Concomitant]
     Active Substance: PANTOPRAZOLE
     Indication: Hypertension
     Dosage: 20 MILLIGRAM, OD
     Route: 065
  7. OLMESARTAN MEDOXOMIL, AMLODIPINE, HYDROCHLOROTHIAZIDE [Concomitant]
     Indication: Hypertension
     Dosage: 40 MG-5 MG-25 MG , OD
     Route: 065

REACTIONS (3)
  - Poisoning [Unknown]
  - Nausea [Recovering/Resolving]
  - Fatigue [Recovering/Resolving]
